FAERS Safety Report 26080387 (Version 2)
Quarter: 2025Q4

REPORT INFORMATION
  Report Type: Spontaneous
  Country: US (occurrence: US)
  Receive Date: 20251124
  Receipt Date: 20251126
  Transmission Date: 20260119
  Serious: No
  Sender: SANOFI AVENTIS
  Company Number: US-SA-2025SA350412

PATIENT
  Age: 60 Year
  Sex: Male
  Weight: 92.07 kg

DRUGS (1)
  1. DUPIXENT [Suspect]
     Active Substance: DUPILUMAB
     Indication: Neurodermatitis
     Dosage: 300 MG, QOW
     Route: 058
     Dates: end: 2025

REACTIONS (5)
  - Ear infection [Unknown]
  - Eating disorder [Unknown]
  - Eye infection [Unknown]
  - Dry eye [Unknown]
  - Conjunctivitis [Unknown]

NARRATIVE: CASE EVENT DATE: 20250101
